FAERS Safety Report 9200383 (Version 1)
Quarter: 2013Q1

REPORT INFORMATION
  Report Type: Spontaneous
  Country: US (occurrence: US)
  Receive Date: 20130329
  Receipt Date: 20130329
  Transmission Date: 20140127
  Serious: Yes (Other)
  Sender: FDA-Public Use
  Company Number: US-ASTRAZENECA-2013SE18796

PATIENT
  Age: 44 Year
  Sex: Male
  Weight: 98.9 kg

DRUGS (1)
  1. NEXIUM [Suspect]
     Indication: GASTROOESOPHAGEAL REFLUX DISEASE
     Route: 048
     Dates: start: 2008

REACTIONS (4)
  - Vocal cord cyst [Unknown]
  - Hypoaesthesia [Unknown]
  - Muscle spasms [Unknown]
  - Musculoskeletal pain [Unknown]
